FAERS Safety Report 21566509 (Version 1)
Quarter: 2022Q4

REPORT INFORMATION
  Report Type: Spontaneous
  Country: US (occurrence: None)
  Receive Date: 20221107
  Receipt Date: 20221107
  Transmission Date: 20230112
  Serious: Yes (Death)
  Sender: FDA-Public Use
  Company Number: None

PATIENT
  Age: 67 Year
  Sex: Male
  Weight: 58 kg

DRUGS (2)
  1. HALOPERIDOL [Suspect]
     Active Substance: HALOPERIDOL
     Indication: Mental status changes
     Dosage: FREQUENCY : AS NEEDED;?
     Route: 042
     Dates: start: 20221023, end: 20221026
  2. LORAZEPAM [Concomitant]
     Active Substance: LORAZEPAM
     Dates: start: 20221026, end: 20221026

REACTIONS (5)
  - Agitation [None]
  - Delirium [None]
  - Symptom recurrence [None]
  - Pulseless electrical activity [None]
  - Intentional self-injury [None]

NARRATIVE: CASE EVENT DATE: 20221026
